FAERS Safety Report 8505600-5 (Version None)
Quarter: 2012Q3

REPORT INFORMATION
  Report Type: 
  Country: None (occurrence: None)
  Receive Date: 20120703
  Receipt Date: 20120625
  Transmission Date: 20120928
  Serious: Yes (Hospitalization)
  Sender: FDA-Public Use
  Company Number: 2012SP035682

PATIENT
  Age: 29 Year
  Sex: Female
  Weight: 54 kg

DRUGS (2)
  1. DESOGESTREL AND ETHINYL ESTRADIOL [Suspect]
     Indication: CONTRACEPTION
     Dosage: PO
     Route: 048
     Dates: start: 20080101
  2. DESOGESTREL AND ETHINYL ESTRADIOL [Suspect]
     Indication: AMENORRHOEA
     Dosage: PO
     Route: 048
     Dates: start: 20080101

REACTIONS (4)
  - WEIGHT INCREASED [None]
  - METRORRHAGIA [None]
  - CHOLECYSTECTOMY [None]
  - AMENORRHOEA [None]
